FAERS Safety Report 18809118 (Version 1)
Quarter: 2021Q1

REPORT INFORMATION
  Report Type: Spontaneous
  Country: ES (occurrence: ES)
  Receive Date: 20210129
  Receipt Date: 20210129
  Transmission Date: 20210419
  Serious: Yes (Other)
  Sender: FDA-Public Use
  Company Number: ES-TEVA-2021-ES-1873003

PATIENT
  Age: 43 Year
  Sex: Female

DRUGS (2)
  1. VALTREX 1.000 MG COMPRIMIDOS RECUBIERTOS CON PELICULA , 21 COMPRIMIDOS [Concomitant]
     Indication: ORAL HERPES
     Dosage: ONE TABLET EVERY 12 HOURS AND THEN ONE EVERY 8 HOURS FOR 7 DAYS
     Dates: start: 20201223, end: 20210107
  2. NAPROXENO RATIOPHARM 500 MG COMPRIMIDOS RECUBIERTOS EFG, 40 COMPRIMIDO [Suspect]
     Active Substance: NAPROXEN
     Indication: BACK PAIN
     Dosage: ONE TABLET (THE PREVIOUS ONE I TOOK 17 DAYS BEFORE OBSERVING THE SAME REACTION)
     Route: 048
     Dates: start: 20210109, end: 20210110

REACTIONS (2)
  - Cheilitis [Recovering/Resolving]
  - Mucosal inflammation [Recovering/Resolving]

NARRATIVE: CASE EVENT DATE: 20210109
